FAERS Safety Report 7360776-0 (Version None)
Quarter: 2011Q1

REPORT INFORMATION
  Report Type: 
  Country: None (occurrence: None)
  Receive Date: 20110318
  Receipt Date: 20110316
  Transmission Date: 20110831
  Serious: Yes (Other)
  Sender: FDA-Public Use
  Company Number: VE-PFIZER INC-2011058021

PATIENT
  Age: 80 Year
  Sex: Female

DRUGS (4)
  1. LIPITOR [Suspect]
     Indication: HYPERCHOLESTEROLAEMIA
     Dosage: 40 MG, 1X/DAY
     Route: 048
  2. DIOVAN [Concomitant]
     Indication: CARDIAC DISORDER
     Dosage: UNK
     Route: 048
  3. PANTOP [Concomitant]
     Dosage: UNK
     Route: 048
  4. CETAPHIL [Concomitant]
     Indication: HERPES ZOSTER
     Dosage: UNK
     Route: 061

REACTIONS (2)
  - GENITAL HERPES [None]
  - HERPES ZOSTER [None]
